FAERS Safety Report 18669858 (Version 1)
Quarter: 2020Q4

REPORT INFORMATION
  Report Type: Spontaneous
  Country: DE (occurrence: DE)
  Receive Date: 20201228
  Receipt Date: 20201228
  Transmission Date: 20210114
  Serious: Yes (Other)
  Sender: FDA-Public Use
  Company Number: DE-PFIZER INC-2020509714

PATIENT
  Sex: Female

DRUGS (6)
  1. PAROXAT [Suspect]
     Active Substance: PAROXETINE HYDROCHLORIDE
     Indication: GENERALISED ANXIETY DISORDER
     Dosage: UNK
     Route: 065
     Dates: end: 20201105
  2. PREGABALIN. [Suspect]
     Active Substance: PREGABALIN
     Dosage: 1 DF, BID
     Route: 065
     Dates: start: 202011, end: 2020
  3. SERTRALINE HCL [Suspect]
     Active Substance: SERTRALINE HYDROCHLORIDE
     Indication: GENERALISED ANXIETY DISORDER
     Dosage: UNK
     Route: 065
     Dates: end: 20201105
  4. PAROXAT [Suspect]
     Active Substance: PAROXETINE HYDROCHLORIDE
     Indication: DEPRESSION
     Dosage: 5 MG
     Route: 065
     Dates: start: 2020
  5. SERTRALINE HCL [Suspect]
     Active Substance: SERTRALINE HYDROCHLORIDE
     Indication: DEPRESSION
  6. PREGABALIN RATIOPHARM [Suspect]
     Active Substance: PREGABALIN
     Dosage: 1 DF, BID
     Route: 065
     Dates: start: 2020

REACTIONS (5)
  - Feeling abnormal [Unknown]
  - Short-bowel syndrome [Unknown]
  - Tremor [Unknown]
  - Insomnia [Unknown]
  - Liver function test increased [Unknown]

NARRATIVE: CASE EVENT DATE: 2020
